FAERS Safety Report 14042751 (Version 3)
Quarter: 2018Q2

REPORT INFORMATION
  Report Type: Report from Study
  Country: US (occurrence: US)
  Receive Date: 20171004
  Receipt Date: 20180404
  Transmission Date: 20180711
  Serious: No
  Sender: FDA-Public Use
  Company Number: US-AMGEN-USASL2017143738

PATIENT
  Age: 20 Year
  Sex: Female

DRUGS (5)
  1. PROLIA [Suspect]
     Active Substance: DENOSUMAB
     Indication: MOBILITY DECREASED
  2. PROLIA [Suspect]
     Active Substance: DENOSUMAB
     Indication: VITAMIN D DEFICIENCY
  3. CALCIUM + VITAMIN D [Concomitant]
     Active Substance: CALCIUM\VITAMIN D
     Dosage: UNK
  4. PROLIA [Suspect]
     Active Substance: DENOSUMAB
     Indication: BONE DISORDER
     Dosage: 60 MG, Q6MO
     Route: 058
  5. PROLIA [Suspect]
     Active Substance: DENOSUMAB
     Indication: GAIT DISTURBANCE

REACTIONS (1)
  - Off label use [Unknown]
